FAERS Safety Report 7736827-8 (Version None)
Quarter: 2011Q3

REPORT INFORMATION
  Report Type: 
  Country: None (occurrence: None)
  Receive Date: 20110908
  Receipt Date: 20110908
  Transmission Date: 20111222
  Serious: Yes (Hospitalization)
  Sender: FDA-Public Use
  Company Number: None

PATIENT
  Age: 76 Year
  Sex: Male
  Weight: 85.3 kg

DRUGS (15)
  1. NOVOLIN 70/30 [Concomitant]
  2. ZETIA [Concomitant]
     Route: 048
  3. NITROGLYCERIN [Concomitant]
     Route: 060
  4. METFORMIN HCL [Concomitant]
     Route: 048
  5. UNI-DAILY [MULTIVITAMIN] [Concomitant]
     Route: 048
  6. TRICOR [Concomitant]
     Route: 048
  7. DIOVAN HCT [Concomitant]
     Route: 048
  8. ERGOCALCIFEROL -VITAMIN D2 [Concomitant]
     Route: 048
  9. PROAIR HFA [Concomitant]
  10. ADVAIR DISKUS 250-50 MCG INHALANT [Concomitant]
  11. METOPROLOL TARTRATE [Concomitant]
     Route: 048
  12. ASPIRIN [Concomitant]
     Route: 048
  13. CRESTOR [Suspect]
     Indication: DYSLIPIDAEMIA
     Dosage: 40  MG
     Route: 048
  14. POTASSIUM CHLORIDE [Concomitant]
     Route: 048
  15. CRESTOR [Concomitant]
     Route: 048

REACTIONS (2)
  - PAIN [None]
  - MYALGIA [None]
